FAERS Safety Report 4974242-0 (Version None)
Quarter: 2006Q2

REPORT INFORMATION
  Report Type: 
  Country: None (occurrence: None)
  Receive Date: 20060417
  Receipt Date: 20051006
  Transmission Date: 20061013
  Serious: Yes (Hospitalization, Other)
  Sender: FDA-Public Use
  Company Number: US-MERCK-0510USA05801

PATIENT
  Age: 69 Year
  Sex: Female
  Weight: 68 kg

DRUGS (1)
  1. VIOXX [Suspect]
     Indication: ARTHRITIS
     Route: 048
     Dates: start: 20000911, end: 20040513

REACTIONS (8)
  - ABDOMINAL NEOPLASM [None]
  - ARTHROPATHY [None]
  - DIFFICULTY IN WALKING [None]
  - FALL [None]
  - ISCHAEMIC STROKE [None]
  - TARDIVE DYSKINESIA [None]
  - UPPER LIMB FRACTURE [None]
  - VERTIGO [None]
